FAERS Safety Report 6975625-X (Version None)
Quarter: 2010Q3

REPORT INFORMATION
  Report Type: 
  Country: None (occurrence: None)
  Receive Date: 20100910
  Receipt Date: 20100901
  Transmission Date: 20110219
  Serious: Yes (Other)
  Sender: FDA-Public Use
  Company Number: US-JNJFOC-20100902011

PATIENT
  Sex: Female

DRUGS (2)
  1. ORTHO EVRA [Suspect]
     Indication: CONTRACEPTION
     Route: 062
  2. ORTHO EVRA [Suspect]
     Route: 062

REACTIONS (12)
  - BREAST ENLARGEMENT [None]
  - BREAST TENDERNESS [None]
  - DIARRHOEA HAEMORRHAGIC [None]
  - INAPPROPRIATE SCHEDULE OF DRUG ADMINISTRATION [None]
  - MALAISE [None]
  - NAUSEA [None]
  - OEDEMA PERIPHERAL [None]
  - POLYMENORRHOEA [None]
  - SUPPRESSED LACTATION [None]
  - VAGINAL INFECTION [None]
  - VULVOVAGINAL DISCOMFORT [None]
  - WEIGHT INCREASED [None]
